FAERS Safety Report 16773865 (Version 2)
Quarter: 2024Q3

REPORT INFORMATION
  Report Type: Spontaneous
  Country: FR (occurrence: FR)
  Receive Date: 20190904
  Receipt Date: 20240917
  Transmission Date: 20241016
  Serious: Yes (Hospitalization, Other)
  Sender: AUROBINDO
  Company Number: FR-AUROBINDO-AUR-APL-2019-057511

PATIENT
  Age: 27 Year
  Sex: Male
  Weight: 97.6 kg

DRUGS (4)
  1. PAROXETINE [Suspect]
     Active Substance: PAROXETINE
     Indication: Mixed anxiety and depressive disorder
     Dosage: 20 MILLIGRAM
     Route: 048
  2. LEVOTHYROXINE SODIUM [Suspect]
     Active Substance: LEVOTHYROXINE SODIUM
     Indication: Hypothyroidism
     Dosage: 50 MICROGRAM
     Route: 048
  3. QUETIAPINE FUMARATE [Suspect]
     Active Substance: QUETIAPINE FUMARATE
     Indication: Mixed anxiety and depressive disorder
     Dosage: UNK
     Route: 048
  4. OXAZEPAM [Suspect]
     Active Substance: OXAZEPAM
     Indication: Mixed anxiety and depressive disorder
     Dosage: UNK
     Route: 048

REACTIONS (1)
  - Type 2 diabetes mellitus [Not Recovered/Not Resolved]

NARRATIVE: CASE EVENT DATE: 20190501
